FAERS Safety Report 4446873-8 (Version None)
Quarter: 2004Q3

REPORT INFORMATION
  Report Type: 
  Country: None (occurrence: None)
  Receive Date: 20040908
  Receipt Date: 20040826
  Transmission Date: 20050211
  Serious: Yes (Other)
  Sender: FDA-Public Use
  Company Number: 2004230733BR

PATIENT
  Sex: Female

DRUGS (1)
  1. ALPRAZOLAM [Suspect]
     Indication: PANIC DISORDER
     Dosage: 0.25 MG/DAY, ORAL
     Route: 048
     Dates: start: 20040601

REACTIONS (3)
  - DIZZINESS [None]
  - DYSPNOEA [None]
  - PANIC ATTACK [None]
